FAERS Safety Report 17505210 (Version 1)
Quarter: 2020Q1

REPORT INFORMATION
  Report Type: Spontaneous
  Country: US (occurrence: US)
  Receive Date: 20200306
  Receipt Date: 20200306
  Transmission Date: 20200409
  Serious: Yes (Other)
  Sender: FDA-Public Use
  Company Number: US-LUPIN PHARMACEUTICALS INC.-2020-00859

PATIENT
  Age: 66 Year
  Sex: Female

DRUGS (1)
  1. IMATINIB MESYLATE. [Suspect]
     Active Substance: IMATINIB MESYLATE
     Indication: GASTROINTESTINAL STROMAL TUMOUR
     Dosage: UNK
     Route: 065

REACTIONS (6)
  - Hepatocellular injury [Not Recovered/Not Resolved]
  - Pyrexia [Unknown]
  - Neutropenia [Unknown]
  - Drug-induced liver injury [Not Recovered/Not Resolved]
  - Rash maculo-papular [Unknown]
  - Fatigue [Unknown]
